FAERS Safety Report 21872261 (Version 1)
Quarter: 2023Q1

REPORT INFORMATION
  Report Type: Spontaneous
  Country: ES (occurrence: ES)
  Receive Date: 20230117
  Receipt Date: 20230117
  Transmission Date: 20230418
  Serious: Yes (Hospitalization, Other)
  Sender: FDA-Public Use
  Company Number: None

PATIENT
  Age: 82 Year
  Sex: Male

DRUGS (6)
  1. DICLOFENAC [Interacting]
     Active Substance: DICLOFENAC
     Indication: Arthralgia
     Route: 048
     Dates: start: 20191229, end: 20191229
  2. SINTROM [Interacting]
     Active Substance: ACENOCOUMAROL
     Indication: Atrial fibrillation
     Dosage: SPL; 20 TABLETS
     Route: 048
     Dates: start: 20120727, end: 20200128
  3. LATANOPROST STADA [Concomitant]
     Indication: Glaucoma
     Dosage: 1 BOTTLE OF 2.5 ML
     Route: 047
     Dates: start: 20120606
  4. OMEPRAZOLE [Concomitant]
     Active Substance: OMEPRAZOLE
     Indication: Product used for unknown indication
     Dosage: GENERIC PHARMACEUTICAL SPECIALTY; 56 CAPSULES
     Route: 048
     Dates: start: 20171227
  5. CANDESARTAN/HIDROCLOROTIAZIDA KERN PHARMA [Concomitant]
     Indication: Hypertension
     Dosage: GENERIC PHARMACEUTICAL SPECIALTY TABLETS, 16 MG/12.5 MG 28 TABLETS
     Route: 048
     Dates: start: 20160902
  6. COSOPT [Concomitant]
     Active Substance: DORZOLAMIDE HYDROCHLORIDE\TIMOLOL MALEATE
     Indication: Glaucoma
     Dosage: 20 MG/ML PLUS 5 MG/ML, EYE DROPS SOLUTION, 1 BOTTLE OF 5 ML
     Route: 047
     Dates: start: 20180221

REACTIONS (3)
  - Drug interaction [Unknown]
  - Melaena [Recovered/Resolved]
  - Duodenal ulcer [Recovered/Resolved]

NARRATIVE: CASE EVENT DATE: 20191229
